FAERS Safety Report 9292290 (Version 1)
Quarter: 2013Q2

REPORT INFORMATION
  Report Type: Spontaneous
  Country: BR (occurrence: BR)
  Receive Date: 20130516
  Receipt Date: 20130516
  Transmission Date: 20140414
  Serious: Yes (Other)
  Sender: FDA-Public Use
  Company Number: PHHY2013BR048533

PATIENT
  Sex: Female
  Weight: 95 kg

DRUGS (3)
  1. RASILEZ AMLO [Suspect]
     Indication: CARDIAC DISORDER
     Dosage: 1 DF (ALIS 300MG, AMLO 5 MG) A DAY
     Route: 048
  2. GALVUS MET [Suspect]
     Dosage: 1 DF (METF 850 MG, VILD 50 MG) A DAY
     Route: 048
  3. SINVASCOR [Concomitant]
     Dosage: 1 DF A DAY
     Route: 048

REACTIONS (1)
  - Eyelid ptosis [Recovered/Resolved]
